FAERS Safety Report 5656181-5 (Version None)
Quarter: 2008Q1

REPORT INFORMATION
  Report Type: 
  Country: None (occurrence: None)
  Receive Date: 20080305
  Receipt Date: 20080219
  Transmission Date: 20080703
  Serious: Yes (Life-Threatening, Hospitalization, Other)
  Sender: FDA-Public Use
  Company Number: 45319

PATIENT
  Age: 78 Year
  Sex: Male

DRUGS (1)
  1. LEUCOVORIN CALCIUM [Suspect]
     Indication: COLORECTAL CANCER METASTATIC
     Dosage: 400 MG/SQ METET 1/2 WEEK IV
     Route: 042
     Dates: start: 20050908

REACTIONS (3)
  - DRUG INTOLERANCE [None]
  - LARGE INTESTINAL ULCER [None]
  - SUBILEUS [None]
